FAERS Safety Report 24010973 (Version 1)
Quarter: 2024Q2

REPORT INFORMATION
  Report Type: Report from Study
  Country: CA (occurrence: None)
  Receive Date: 20240625
  Receipt Date: 20240625
  Transmission Date: 20240716
  Serious: Yes (Other)
  Sender: FDA-Public Use
  Company Number: 2024A143798

PATIENT
  Sex: Male

DRUGS (9)
  1. FASENRA [Suspect]
     Active Substance: BENRALIZUMAB
     Indication: Asthma
     Route: 058
     Dates: start: 20180626
  2. SYMBICORT [Concomitant]
     Active Substance: BUDESONIDE\FORMOTEROL FUMARATE DIHYDRATE
     Dosage: 2PUFFS TWICE
  3. INCRUSE ELLIPTA [Concomitant]
     Active Substance: UMECLIDINIUM BROMIDE
     Dosage: 1PUFF
  4. OMNARIS [Concomitant]
     Active Substance: CICLESONIDE
     Dosage: 2 SPRAY
  5. CANDESARTAN [Concomitant]
     Active Substance: CANDESARTAN
     Dosage: 8MG 1 TABLET
  6. BISOPROLOL [Concomitant]
     Active Substance: BISOPROLOL\BISOPROLOL FUMARATE
     Dosage: 5MG 1 TABLET
  7. PMA-HYDROCHLOROTHIAZIDE [Concomitant]
     Dosage: 25MG ? TABLET
  8. METFORMIN [Concomitant]
     Active Substance: METFORMIN HYDROCHLORIDE
     Dosage: 25MG ? TABLET
  9. RANITIDINE [Concomitant]
     Active Substance: RANITIDINE
     Dosage: 25MG ? TABLET

REACTIONS (2)
  - Aneurysm [Unknown]
  - Hypertension [Unknown]
